FAERS Safety Report 9587966 (Version 2)
Quarter: 2013Q4

REPORT INFORMATION
  Report Type: Spontaneous
  Country: US (occurrence: US)
  Receive Date: 20131003
  Receipt Date: 20131224
  Transmission Date: 20140711
  Serious: Yes (Death, Hospitalization)
  Sender: FDA-Public Use
  Company Number: US-TMC-CABO-13003382

PATIENT
  Sex: Male

DRUGS (1)
  1. COMETRIQ [Suspect]
     Indication: BLADDER CANCER
     Dosage: 80 MG, QD
     Route: 048
     Dates: start: 20130917

REACTIONS (3)
  - Intestinal obstruction [Unknown]
  - Malignant neoplasm progression [Fatal]
  - Off label use [Unknown]
